FAERS Safety Report 9200096 (Version 6)
Quarter: 2014Q2

REPORT INFORMATION
  Report Type: Report from Study
  Country: US (occurrence: US)
  Receive Date: 20130329
  Receipt Date: 20140509
  Transmission Date: 20141212
  Serious: Yes (Hospitalization, Other)
  Sender: FDA-Public Use
  Company Number: US-SANOFI-AVENTIS-2013SA029856

PATIENT
  Age: 41 Year
  Sex: Male

DRUGS (1)
  1. AUBAGIO [Suspect]
     Indication: MULTIPLE SCLEROSIS
     Route: 048
     Dates: start: 20130127, end: 20140429

REACTIONS (10)
  - Fall [Unknown]
  - Clavicle fracture [Unknown]
  - Multiple sclerosis relapse [Not Recovered/Not Resolved]
  - Hypoaesthesia [Recovering/Resolving]
  - Musculoskeletal disorder [Recovering/Resolving]
  - Balance disorder [Not Recovered/Not Resolved]
  - Diabetic neuropathy [Unknown]
  - Intervertebral disc protrusion [Unknown]
  - Surgery [Unknown]
  - Influenza like illness [Unknown]
